FAERS Safety Report 8024439-0 (Version None)
Quarter: 2012Q1

REPORT INFORMATION
  Report Type: 
  Country: None (occurrence: None)
  Receive Date: 20120105
  Receipt Date: 20111226
  Transmission Date: 20120608
  Serious: Yes (Hospitalization)
  Sender: FDA-Public Use
  Company Number: PHHO2011JP13290

PATIENT
  Sex: Male
  Weight: 47 kg

DRUGS (12)
  1. SLOW-K [Concomitant]
     Indication: HYPOKALAEMIA
     Dosage: 600 MG, UNK
     Route: 048
     Dates: start: 20100916
  2. ASPIRIN [Concomitant]
     Dosage: 200 MG, QD
     Route: 048
     Dates: start: 20110728, end: 20110818
  3. RABEPRAZOLE SODIUM [Concomitant]
     Indication: GASTRITIS PROPHYLAXIS
     Dosage: 10 MG, UNK
     Route: 048
     Dates: start: 20080722
  4. CARVEDILOL [Concomitant]
     Indication: CARDIAC FAILURE CHRONIC
     Dosage: 10 MG, UNK
     Route: 048
     Dates: start: 20081211
  5. ASPIRIN [Concomitant]
     Indication: PROPHYLAXIS
     Dosage: 200 MG, QD
     Route: 048
     Dates: start: 20080722, end: 20110728
  6. LIPITOR [Concomitant]
     Dosage: 10 MG, UNK
     Route: 048
     Dates: start: 20080722
  7. LASIX [Concomitant]
     Indication: CARDIAC FAILURE CHRONIC
     Dosage: 40 MG, UNK
     Route: 048
     Dates: start: 20080722
  8. WARFARIN SODIUM [Concomitant]
     Dosage: 3.5 MG, QD
     Route: 048
     Dates: start: 20110428
  9. ALISKIREN [Suspect]
     Indication: CARDIAC FAILURE
     Dosage: UNK
     Route: 048
  10. SIGMART [Concomitant]
     Indication: PROPHYLAXIS
     Dosage: 15 MG, UNK
     Route: 048
     Dates: start: 20080722
  11. WARFARIN SODIUM [Concomitant]
     Dosage: 3.5 MG, QD
     Route: 048
     Dates: start: 20110810, end: 20110905
  12. ALLOPURINOL [Concomitant]
     Dosage: 200 MG, UNK
     Route: 048
     Dates: start: 20080918

REACTIONS (1)
  - EOSINOPHILIC OESOPHAGITIS [None]
